FAERS Safety Report 22380589 (Version 1)
Quarter: 2023Q2

REPORT INFORMATION
  Report Type: Report from Study
  Country: CO (occurrence: CO)
  Receive Date: 20230529
  Receipt Date: 20230529
  Transmission Date: 20230722
  Serious: Yes (Disabling, Other)
  Sender: FDA-Public Use
  Company Number: CO-ABBVIE-5182809

PATIENT
  Sex: Female

DRUGS (2)
  1. HUMIRA [Suspect]
     Active Substance: ADALIMUMAB
     Indication: Psoriasis
     Route: 058
     Dates: start: 202304
  2. HUMIRA [Suspect]
     Active Substance: ADALIMUMAB
     Route: 058
     Dates: start: 20220623

REACTIONS (8)
  - Influenza [Recovered/Resolved]
  - Pharyngitis bacterial [Recovered/Resolved]
  - Bronchitis [Recovered/Resolved]
  - Laboratory test abnormal [Recovered/Resolved]
  - Bronchial obstruction [Recovered/Resolved]
  - Conjunctivitis bacterial [Recovered/Resolved]
  - Eye discharge [Recovered/Resolved]
  - Eye disorder [Recovered/Resolved]

NARRATIVE: CASE EVENT DATE: 20230101
